FAERS Safety Report 18519321 (Version 2)
Quarter: 2020Q4

REPORT INFORMATION
  Report Type: Report from Study
  Country: US (occurrence: US)
  Receive Date: 20201118
  Receipt Date: 20201218
  Transmission Date: 20210114
  Serious: Yes (Other)
  Sender: FDA-Public Use
  Company Number: US-BAUSCH-BL-2020-029570

PATIENT
  Age: 64 Year
  Sex: Male
  Weight: 164.8 kg

DRUGS (1)
  1. XIFAXAN [Suspect]
     Active Substance: RIFAXIMIN
     Indication: HEPATIC ENCEPHALOPATHY
     Dosage: STARTED 4 TO 5 MONTHS AGO
     Route: 048
     Dates: start: 2020

REACTIONS (4)
  - Muscle spasms [Not Recovered/Not Resolved]
  - Intentional dose omission [Unknown]
  - Lung disorder [Not Recovered/Not Resolved]
  - Malaise [Not Recovered/Not Resolved]

NARRATIVE: CASE EVENT DATE: 2020
